FAERS Safety Report 12301214 (Version 2)
Quarter: 2016Q2

REPORT INFORMATION
  Report Type: Spontaneous
  Country: US (occurrence: US)
  Receive Date: 20160425
  Receipt Date: 20160428
  Transmission Date: 20160815
  Serious: Yes (Death, Life-Threatening, Hospitalization)
  Sender: FDA-Public Use
  Company Number: US-AMGEN-USASP2016052065

PATIENT
  Age: 53 Year
  Sex: Male

DRUGS (1)
  1. ENBREL [Suspect]
     Active Substance: ETANERCEPT
     Indication: PSORIASIS
     Dosage: UNK UNK, UNK
     Route: 065
     Dates: start: 20150113, end: 201507

REACTIONS (4)
  - Thrombosis [Unknown]
  - Ophthalmic herpes zoster [Unknown]
  - Cerebral thrombosis [Unknown]
  - Death [Fatal]

NARRATIVE: CASE EVENT DATE: 201507
